FAERS Safety Report 7163779-4 (Version None)
Quarter: 2010Q4

REPORT INFORMATION
  Report Type: 
  Country: None (occurrence: None)
  Receive Date: 20101215
  Receipt Date: 20100611
  Transmission Date: 20110411
  Serious: Yes (Other)
  Sender: FDA-Public Use
  Company Number: US-PFIZER INC-2010073799

PATIENT
  Sex: Female
  Weight: 102.4 kg

DRUGS (2)
  1. LYRICA [Suspect]
     Indication: FIBROMYALGIA
     Dosage: 75 MG, DAILY
     Route: 048
     Dates: start: 20091101, end: 20100519
  2. LYRICA [Suspect]
     Indication: DEPRESSION

REACTIONS (2)
  - FLUID RETENTION [None]
  - JOINT SWELLING [None]
